FAERS Safety Report 5871775-X (Version None)
Quarter: 2008Q3

REPORT INFORMATION
  Report Type: 
  Country: None (occurrence: None)
  Receive Date: 20080905
  Receipt Date: 20080827
  Transmission Date: 20090109
  Serious: Yes (Hospitalization)
  Sender: FDA-Public Use
  Company Number: US-ROCHE-580555

PATIENT
  Sex: Female
  Weight: 84.8 kg

DRUGS (10)
  1. TICLID [Suspect]
     Indication: DRUG USE FOR UNKNOWN INDICATION
     Route: 065
  2. TICLID [Suspect]
     Route: 065
     Dates: start: 20080511
  3. LIPITOR [Suspect]
     Route: 048
     Dates: start: 20080304, end: 20080413
  4. PLAVIX [Suspect]
     Indication: HYPERTENSION
     Dosage: OTHER INDICATION REPORTED AS: CARDIAC CATHETERISATION
     Route: 048
     Dates: start: 20080304, end: 20080416
  5. PLAVIX [Suspect]
     Route: 048
  6. METOPROLOL TARTRATE [Concomitant]
     Dates: start: 20001106
  7. ACETYLSALICYLIC ACID SRT [Concomitant]
     Dates: start: 20080303
  8. ACETYLSALICYLIC ACID SRT [Concomitant]
     Dates: start: 20001116
  9. RAMIPRIL [Concomitant]
     Route: 048
     Dates: start: 20001106
  10. RAMIPRIL [Concomitant]
     Route: 048
     Dates: start: 20080303

REACTIONS (5)
  - AGEUSIA [None]
  - DEHYDRATION [None]
  - DIARRHOEA [None]
  - VOMITING [None]
  - WEIGHT DECREASED [None]
